FAERS Safety Report 14165992 (Version 2)
Quarter: 2017Q4

REPORT INFORMATION
  Report Type: Report from Study
  Country: GB (occurrence: GB)
  Receive Date: 20171107
  Receipt Date: 20171113
  Transmission Date: 20180321
  Serious: Yes (Death)
  Sender: FDA-Public Use
  Company Number: GB-EMD SERONO-E2B_80088156

PATIENT
  Age: 31 Year
  Sex: Male

DRUGS (1)
  1. AVELUMAB [Suspect]
     Active Substance: AVELUMAB
     Indication: HODGKIN^S DISEASE
     Dosage: UNK, EVERY 3 WEEKS
     Route: 042

REACTIONS (1)
  - Pseudomonal sepsis [Fatal]
